FAERS Safety Report 13316568 (Version 1)
Quarter: 2017Q1

REPORT INFORMATION
  Report Type: Spontaneous
  Country: US (occurrence: US)
  Receive Date: 20170310
  Receipt Date: 20170310
  Transmission Date: 20170428
  Serious: Yes (Other)
  Sender: FDA-Public Use
  Company Number: US-BION-006065

PATIENT
  Age: 87 Year
  Sex: Male
  Weight: 88.45 kg

DRUGS (4)
  1. TOCOPHEROL [Concomitant]
     Active Substance: TOCOPHEROL
  2. ERGOCALCIFEROL. [Concomitant]
     Active Substance: ERGOCALCIFEROL
  3. ASCORBIC ACID. [Concomitant]
     Active Substance: ASCORBIC ACID
  4. IMODIUM A-D [Suspect]
     Active Substance: LOPERAMIDE HYDROCHLORIDE
     Indication: DIARRHOEA
     Dosage: 1 SOFT GEL, 1 TIME
     Route: 048
     Dates: start: 20170223, end: 20170223

REACTIONS (3)
  - Drug ineffective [Not Recovered/Not Resolved]
  - Incorrect dose administered [Not Recovered/Not Resolved]
  - Hepatic pain [Recovered/Resolved]

NARRATIVE: CASE EVENT DATE: 20170223
